FAERS Safety Report 6092137-9 (Version None)
Quarter: 2009Q1

REPORT INFORMATION
  Report Type: 
  Country: None (occurrence: None)
  Receive Date: 20090223
  Receipt Date: 20090223
  Transmission Date: 20090719
  Serious: Yes (Other)
  Sender: FDA-Public Use
  Company Number: None

PATIENT
  Age: 59 Year
  Sex: Female
  Weight: 53 kg

DRUGS (2)
  1. OXALIPLATIN [Suspect]
     Indication: COLON CANCER
     Dosage: 131 MG ONCE IV DRIP
     Route: 042
     Dates: start: 20090210, end: 20090210
  2. ERBITUX [Suspect]
     Indication: COLON CANCER
     Dosage: 770 MG ONCE IV
     Route: 042
     Dates: start: 20090210, end: 20090210

REACTIONS (7)
  - FLUSHING [None]
  - HYPOTENSION [None]
  - INFUSION RELATED REACTION [None]
  - NAUSEA [None]
  - ORAL DISCOMFORT [None]
  - TACHYCARDIA [None]
  - UNRESPONSIVE TO STIMULI [None]
